FAERS Safety Report 9311434 (Version 2)
Quarter: 2013Q2

REPORT INFORMATION
  Report Type: Spontaneous
  Country: US (occurrence: US)
  Receive Date: 20130528
  Receipt Date: 20130601
  Transmission Date: 20140414
  Serious: No
  Sender: FDA-Public Use
  Company Number: US-009507513-1305USA013461

PATIENT
  Age: 34 Year
  Sex: Female

DRUGS (1)
  1. ASMANEX TWISTHALER [Suspect]
     Indication: BRONCHITIS
     Dosage: ONE PUFF TWICE A DAY FOR TWO DAYS, THEN ONE PUFF ONCE A DAY FOR 7 DAYS
     Route: 055
     Dates: start: 20130521

REACTIONS (3)
  - Speech disorder [Unknown]
  - Drug dose omission [Unknown]
  - Device malfunction [Unknown]
